FAERS Safety Report 4591774-8 (Version None)
Quarter: 2005Q1

REPORT INFORMATION
  Report Type: 
  Country: None (occurrence: None)
  Receive Date: 20050218
  Receipt Date: 20050208
  Transmission Date: 20050727
  Serious: Yes (Death)
  Sender: FDA-Public Use
  Company Number: 2005026649

PATIENT
  Sex: Female

DRUGS (1)
  1. BENADRYL [Suspect]
     Indication: INSOMNIA
     Dosage: ON AND OFF FOR YEARS, ORAL
     Route: 048

REACTIONS (1)
  - SEPSIS [None]
